FAERS Safety Report 4742367-0 (Version None)
Quarter: 2005Q3

REPORT INFORMATION
  Report Type: 
  Country: None (occurrence: None)
  Receive Date: 20050808
  Receipt Date: 20050727
  Transmission Date: 20060218
  Serious: Yes (Hospitalization)
  Sender: FDA-Public Use
  Company Number: USA050598750

PATIENT
  Age: 66 Year
  Sex: Female

DRUGS (8)
  1. FORTEO [Suspect]
     Dates: start: 20050201
  2. INDERAL (PROPANOLOL HYDROCHLORIDE) [Concomitant]
  3. SYNTHROID [Concomitant]
  4. ZOCOR [Concomitant]
  5. TUSSIONEX [Concomitant]
  6. ALLEGRA (FEXOFENADINE HDYROCHLORIDE) [Concomitant]
  7. MAXALT [Concomitant]
  8. FORTAZ [Concomitant]

REACTIONS (24)
  - ANOREXIA [None]
  - ASTHENIA [None]
  - BLOOD SODIUM DECREASED [None]
  - CHILLS [None]
  - COUGH [None]
  - CREPITATIONS [None]
  - DEHYDRATION [None]
  - DYSPHONIA [None]
  - DYSPNOEA [None]
  - HAEMATOCRIT DECREASED [None]
  - HAEMOGLOBIN DECREASED [None]
  - HYPERNATRAEMIA [None]
  - HYPOKALAEMIA [None]
  - MALAISE [None]
  - MUSCLE FATIGUE [None]
  - MUSCULAR WEAKNESS [None]
  - NAUSEA [None]
  - PHARMACEUTICAL PRODUCT COMPLAINT [None]
  - PNEUMONIA [None]
  - PYREXIA [None]
  - RESPIRATORY RATE INCREASED [None]
  - SPUTUM DISCOLOURED [None]
  - VOMITING [None]
  - WHITE BLOOD CELL COUNT INCREASED [None]
